FAERS Safety Report 24060537 (Version 2)
Quarter: 2024Q3

REPORT INFORMATION
  Report Type: Spontaneous
  Country: KE (occurrence: KE)
  Receive Date: 20240708
  Receipt Date: 20240710
  Transmission Date: 20241016
  Serious: Yes (Hospitalization, Disabling, Other)
  Sender: PFIZER
  Company Number: KE-MLMSERVICE-20240625-PI112092-00060-2

PATIENT
  Age: 48 Year
  Sex: Female

DRUGS (1)
  1. AZITHROMYCIN [Suspect]
     Active Substance: AZITHROMYCIN
     Indication: COVID-19 pneumonia
     Dosage: 500 MG, 1X/DAY, OVER-THE-COUNTER (5 DAYS)

REACTIONS (5)
  - Cholestasis [Recovering/Resolving]
  - Sleep deficit [Recovering/Resolving]
  - Cholestatic pruritus [Recovering/Resolving]
  - Impaired quality of life [Recovering/Resolving]
  - Intentional product use issue [Unknown]
